FAERS Safety Report 6528712-4 (Version None)
Quarter: 2009Q4

REPORT INFORMATION
  Report Type: 
  Country: None (occurrence: None)
  Receive Date: 20091224
  Receipt Date: 20091221
  Transmission Date: 20100525
  Serious: Yes (Other)
  Sender: FDA-Public Use
  Company Number: 2009SP042189

PATIENT
  Age: 37 Year
  Sex: Female

DRUGS (5)
  1. DESLORATADINE [Suspect]
     Indication: RHINITIS ALLERGIC
  2. POLYDEXA (NEOMYCINE + POLYMYXINE B + DEXATHEMASONE) [Concomitant]
  3. ALMIDE [Concomitant]
  4. TRIAMCINOLONE [Concomitant]
  5. CLARITIN [Concomitant]

REACTIONS (1)
  - PHOTOSENSITIVITY REACTION [None]
